FAERS Safety Report 9837009 (Version 3)
Quarter: 2016Q4

REPORT INFORMATION
  Report Type: Spontaneous
  Country: US (occurrence: US)
  Receive Date: 20140123
  Receipt Date: 20161206
  Transmission Date: 20170207
  Serious: No
  Sender: FDA-Public Use
  Company Number: US-PFIZER INC-2014018541

PATIENT
  Age: 57 Year
  Sex: Female

DRUGS (5)
  1. LEXAPRO [Suspect]
     Active Substance: ESCITALOPRAM OXALATE
     Dosage: UNK
  2. CYMBALTA [Suspect]
     Active Substance: DULOXETINE HYDROCHLORIDE
     Indication: CHEST PAIN
     Dosage: UNK, 1X/DAY
     Route: 048
     Dates: start: 20130214, end: 20130228
  3. AMITRIPTYLINE [Suspect]
     Active Substance: AMITRIPTYLINE
     Indication: PSYCHOTIC DISORDER
     Dosage: UNK
     Route: 048
     Dates: end: 201203
  4. NEURONTIN [Suspect]
     Active Substance: GABAPENTIN
     Indication: VOMITING
     Dosage: UNK, DAILY
     Route: 048
     Dates: start: 201112, end: 201201
  5. PROZAC [Suspect]
     Active Substance: FLUOXETINE HYDROCHLORIDE
     Dosage: UNK

REACTIONS (2)
  - Product use issue [Unknown]
  - Drug hypersensitivity [Unknown]
